FAERS Safety Report 23757338 (Version 1)
Quarter: 2024Q2

REPORT INFORMATION
  Report Type: Spontaneous
  Country: US (occurrence: None)
  Receive Date: 20240418
  Receipt Date: 20240418
  Transmission Date: 20240716
  Serious: Yes (Hospitalization)
  Sender: FDA-Public Use
  Company Number: None

PATIENT
  Age: 68 Year
  Sex: Female
  Weight: 48.15 kg

DRUGS (4)
  1. PROLIA [Suspect]
     Active Substance: DENOSUMAB
  2. DILTIAZEM [Concomitant]
     Active Substance: DILTIAZEM
  3. ATIVAN [Concomitant]
     Active Substance: LORAZEPAM
  4. AMBIEN [Concomitant]
     Active Substance: ZOLPIDEM TARTRATE

REACTIONS (2)
  - Jaw disorder [None]
  - Tooth extraction [None]

NARRATIVE: CASE EVENT DATE: 20200705
